FAERS Safety Report 5246389-5 (Version None)
Quarter: 2007Q1

REPORT INFORMATION
  Report Type: 
  Country: None (occurrence: None)
  Receive Date: 20070226
  Receipt Date: 20070214
  Transmission Date: 20070707
  Serious: Yes (Hospitalization)
  Sender: FDA-Public Use
  Company Number: HQWYE674114FEB07

PATIENT
  Age: 67 Year
  Sex: Male

DRUGS (6)
  1. INIPOMP [Suspect]
     Dosage: UNKNOWN
     Route: 048
     Dates: start: 20060101
  2. METFORMIN HCL [Suspect]
     Indication: DIABETES MELLITUS NON-INSULIN-DEPENDENT
     Dosage: UNKNOWN
     Route: 048
     Dates: start: 20060701, end: 20070115
  3. HYTACAND [Suspect]
     Indication: HYPERTENSION
     Dosage: UNKNOWN
     Route: 048
     Dates: start: 20020101
  4. ROSIGLITAZONE [Suspect]
     Indication: DIABETES MELLITUS NON-INSULIN-DEPENDENT
     Dosage: UNKNOWN
     Route: 048
     Dates: start: 20060707, end: 20070115
  5. ALFUZOSIN [Suspect]
     Dosage: UNKNOWN
     Route: 048
     Dates: start: 20060101
  6. DIOSMIN [Suspect]
     Dosage: UNKNOWN
     Route: 048
     Dates: start: 20060101

REACTIONS (2)
  - BUNDLE BRANCH BLOCK LEFT [None]
  - CARDIAC FAILURE [None]
